FAERS Safety Report 6238902-6 (Version None)
Quarter: 2009Q2

REPORT INFORMATION
  Report Type: 
  Country: None (occurrence: None)
  Receive Date: 20090617
  Receipt Date: 20090617
  Transmission Date: 20091009
  Serious: Yes (Life-Threatening)
  Sender: FDA-Public Use
  Company Number: None

PATIENT
  Age: 23 Year
  Sex: Female
  Weight: 63.5036 kg

DRUGS (3)
  1. YAZ [Suspect]
     Indication: CONTRACEPTION
     Dosage: SINGLE PILL DAILU PO
     Route: 048
     Dates: start: 20070620
  2. ORTHO TRI-CYCLEN LO [Concomitant]
  3. CHANTIX [Concomitant]

REACTIONS (6)
  - ACNE [None]
  - BREAST DISCHARGE [None]
  - HORMONE LEVEL ABNORMAL [None]
  - IRRITABLE BOWEL SYNDROME [None]
  - PULMONARY ARTERIAL HYPERTENSION [None]
  - WEIGHT INCREASED [None]
